FAERS Safety Report 19117070 (Version 3)
Quarter: 2021Q2

REPORT INFORMATION
  Report Type: Report from Study
  Country: CO (occurrence: CO)
  Receive Date: 20210409
  Receipt Date: 20210511
  Transmission Date: 20210717
  Serious: Yes (Hospitalization)
  Sender: FDA-Public Use
  Company Number: NVSC2021CO075893

PATIENT
  Age: 16 Year
  Sex: Female
  Weight: 47 kg

DRUGS (5)
  1. JADENU [Suspect]
     Active Substance: DEFERASIROX
     Indication: SICKLE CELL DISEASE
  2. HYDROXYUREA. [Concomitant]
     Active Substance: HYDROXYUREA
     Indication: IRON OVERLOAD
     Dosage: 500 MG, Q24H
     Route: 048
     Dates: start: 2011
  3. FOLIC ACID. [Concomitant]
     Active Substance: FOLIC ACID
     Indication: OXYGEN THERAPY
     Dosage: SINCE 4 MONTHS OLD (1 MG, QD)
     Route: 048
  4. HYDROXYUREA. [Concomitant]
     Active Substance: HYDROXYUREA
     Indication: SICKLE CELL DISEASE
  5. JADENU [Suspect]
     Active Substance: DEFERASIROX
     Indication: IRON OVERLOAD
     Dosage: 360 MG, Q24H
     Route: 048
     Dates: start: 2011

REACTIONS (4)
  - Haemoglobin decreased [Recovered/Resolved]
  - Pain in extremity [Unknown]
  - Sickle cell anaemia with crisis [Recovered/Resolved]
  - Anaemia [Unknown]

NARRATIVE: CASE EVENT DATE: 20210328
